FAERS Safety Report 5153259-X (Version None)
Quarter: 2006Q4

REPORT INFORMATION
  Report Type: 
  Country: None (occurrence: None)
  Receive Date: 20061117
  Receipt Date: 20061107
  Transmission Date: 20070319
  Serious: Yes (Hospitalization)
  Sender: FDA-Public Use
  Company Number: CA-ROCHE-470497

PATIENT
  Age: 26 Year
  Sex: Male

DRUGS (9)
  1. CELLCEPT [Suspect]
     Indication: DRUG USE FOR UNKNOWN INDICATION
     Route: 065
     Dates: start: 20040215
  2. FK506 [Suspect]
     Indication: DRUG USE FOR UNKNOWN INDICATION
     Route: 065
     Dates: start: 20040215
  3. EPREX [Suspect]
     Indication: NEPHROGENIC ANAEMIA
     Dosage: PATIENT ON PERITONEAL DIALYSIS
     Route: 058
     Dates: start: 20060909
  4. TUMS [Concomitant]
  5. PREDNISONE TAB [Concomitant]
  6. CARDIZEM [Concomitant]
  7. RAPAMYCIN [Concomitant]
  8. EPREX [Suspect]
     Dosage: PATIENT ON HAEMODIALYSIS
     Route: 042
     Dates: start: 20051213, end: 20060606
  9. IRON [Concomitant]

REACTIONS (2)
  - APLASIA PURE RED CELL [None]
  - THERAPEUTIC RESPONSE DECREASED [None]
